FAERS Safety Report 17273035 (Version 2)
Quarter: 2020Q1

REPORT INFORMATION
  Report Type: Spontaneous
  Country: US (occurrence: US)
  Receive Date: 20200115
  Receipt Date: 20200221
  Transmission Date: 20200409
  Serious: No
  Sender: FDA-Public Use
  Company Number: US-PFIZER INC-2020017863

PATIENT
  Age: 71 Year
  Sex: Female
  Weight: 62.59 kg

DRUGS (1)
  1. DEPO-MEDROL [Suspect]
     Active Substance: METHYLPREDNISOLONE ACETATE
     Indication: NEURALGIA
     Dosage: 80 ML, SINGLE (1 TIME)
     Dates: start: 20190925

REACTIONS (11)
  - Musculoskeletal stiffness [Not Recovered/Not Resolved]
  - Blood pressure increased [Recovered/Resolved]
  - Muscle tightness [Not Recovered/Not Resolved]
  - Headache [Not Recovered/Not Resolved]
  - Muscle spasms [Unknown]
  - Dizziness [Not Recovered/Not Resolved]
  - Fatigue [Not Recovered/Not Resolved]
  - Hot flush [Not Recovered/Not Resolved]
  - Tension headache [Not Recovered/Not Resolved]
  - Palpitations [Recovered/Resolved]
  - Anxiety [Recovered/Resolved]

NARRATIVE: CASE EVENT DATE: 20190925
